FAERS Safety Report 18381232 (Version 1)
Quarter: 2020Q4

REPORT INFORMATION
  Report Type: Report from Study
  Country: JP (occurrence: JP)
  Receive Date: 20201014
  Receipt Date: 20201014
  Transmission Date: 20210114
  Serious: Yes (Death, Other)
  Sender: FDA-Public Use
  Company Number: JP-VISTAPHARM, INC.-VER202010-001725

PATIENT
  Age: 72 Year
  Sex: Female

DRUGS (2)
  1. MIZORIBINE [Suspect]
     Active Substance: MIZORIBINE
     Indication: IMMUNOSUPPRESSION
     Dosage: UNKNOWN
     Route: 065
  2. PREDNISOLONE. [Suspect]
     Active Substance: PREDNISOLONE
     Indication: RHEUMATOID ARTHRITIS
     Dosage: 12.5 MG
     Route: 065

REACTIONS (3)
  - Nocardiosis [Fatal]
  - Multiple organ dysfunction syndrome [Fatal]
  - Bacterial sepsis [Fatal]
